FAERS Safety Report 13450047 (Version 1)
Quarter: 2017Q2

REPORT INFORMATION
  Report Type: Spontaneous
  Country: US (occurrence: US)
  Receive Date: 20170417
  Receipt Date: 20170417
  Transmission Date: 20170830
  Serious: No
  Sender: FDA-Public Use
  Company Number: US-BION-20160562

PATIENT
  Age: 62 Year
  Sex: Female
  Weight: 92.08 kg

DRUGS (6)
  1. ALEVE [Suspect]
     Active Substance: NAPROXEN SODIUM
     Indication: HEADACHE
     Dosage: 1 DF
     Route: 048
     Dates: start: 2016, end: 20160926
  2. ABILIFY [Concomitant]
     Active Substance: ARIPIPRAZOLE
  3. ATENOLOL. [Concomitant]
     Active Substance: ATENOLOL
  4. LITHIUM. [Concomitant]
     Active Substance: LITHIUM
  5. NEXIUM [Concomitant]
     Active Substance: ESOMEPRAZOLE MAGNESIUM
  6. SPRING VALLEY CALCIUM SUPPLEMENT [Concomitant]

REACTIONS (2)
  - Blister [Not Recovered/Not Resolved]
  - Incorrect drug administration duration [Unknown]

NARRATIVE: CASE EVENT DATE: 2016
